FAERS Safety Report 10441288 (Version 1)
Quarter: 2014Q3

REPORT INFORMATION
  Report Type: Spontaneous
  Country: US (occurrence: None)
  Receive Date: 20140908
  Receipt Date: 20140908
  Transmission Date: 20150326
  Serious: Yes (Hospitalization)
  Sender: FDA-Public Use
  Company Number: None

PATIENT
  Age: 5 Year
  Sex: Female
  Weight: 172 kg

DRUGS (4)
  1. PREDNISONE. [Suspect]
     Active Substance: PREDNISONE
     Dates: start: 20140720
  2. VINCRISTINE SULFATE. [Suspect]
     Active Substance: VINCRISTINE SULFATE
     Dates: start: 20140716
  3. MERCAPTOPURINE. [Suspect]
     Active Substance: MERCAPTOPURINE
     Dates: start: 20140902
  4. METHOTREXATE [Suspect]
     Active Substance: METHOTREXATE
     Dates: start: 20140827

REACTIONS (8)
  - Mouth ulceration [None]
  - Hypophagia [None]
  - Rash [None]
  - Pancytopenia [None]
  - Discomfort [None]
  - Wound [None]
  - Mucosal inflammation [None]
  - Urine odour abnormal [None]

NARRATIVE: CASE EVENT DATE: 20140827
